FAERS Safety Report 14034618 (Version 1)
Quarter: 2017Q4

REPORT INFORMATION
  Report Type: Report from Study
  Country: US (occurrence: US)
  Receive Date: 20171003
  Receipt Date: 20171003
  Transmission Date: 20180321
  Serious: Yes (Death, Other)
  Sender: FDA-Public Use
  Company Number: US-TEVA-810547USA

PATIENT
  Age: 31 Year
  Sex: Female
  Weight: 58.96 kg

DRUGS (53)
  1. TACROLIMUS. [Concomitant]
     Active Substance: TACROLIMUS
     Dates: start: 20170629, end: 20170728
  2. ALTEPLASE. [Concomitant]
     Active Substance: ALTEPLASE
     Dates: start: 20170708, end: 20170724
  3. POTASSIUM CHLORIDE. [Concomitant]
     Active Substance: POTASSIUM CHLORIDE
     Dates: start: 20170711, end: 20170716
  4. INSULIN [Concomitant]
     Active Substance: INSULIN NOS
     Dates: start: 20170712, end: 20170728
  5. ALBUTEROL. [Concomitant]
     Active Substance: ALBUTEROL
     Dates: start: 20170623, end: 20170719
  6. CALCIUM CARBONATE. [Concomitant]
     Active Substance: CALCIUM CARBONATE
     Dates: start: 20170720, end: 20170726
  7. CALCITROL [Concomitant]
     Active Substance: CALCITRIOL
     Dates: start: 20170720, end: 20170726
  8. ALBUMIN [Concomitant]
     Active Substance: ALBUMIN HUMAN
     Dates: start: 20170725, end: 20170728
  9. ACYCLOVIR. [Concomitant]
     Active Substance: ACYCLOVIR
     Dates: start: 20170624, end: 20170728
  10. LEVOFLOXACIN. [Concomitant]
     Active Substance: LEVOFLOXACIN
     Dates: start: 20170624, end: 20170726
  11. VEDOLIZUMAB [Suspect]
     Active Substance: VEDOLIZUMAB
     Dosage: TIMES ONE;REGIMEN #2
     Route: 042
     Dates: start: 20170713, end: 20170713
  12. ENBREL [Suspect]
     Active Substance: ETANERCEPT
     Indication: GRAFT VERSUS HOST DISEASE
     Dosage: REGIMEN #1, MON AND THURS
     Route: 058
     Dates: start: 20170720, end: 20170728
  13. LORAZEPAM. [Concomitant]
     Active Substance: LORAZEPAM
     Dates: start: 20170714, end: 20170721
  14. CYCLOBENZAPRINE. [Concomitant]
     Active Substance: CYCLOBENZAPRINE
     Dates: start: 20170722, end: 20170725
  15. DIPHENOXYLATE W/ATROPINE SULFATE [Concomitant]
     Active Substance: ATROPINE SULFATE\DIPHENOXYLATE
     Dates: start: 20170630, end: 20170715
  16. HYOSCYAMINE. [Concomitant]
     Active Substance: HYOSCYAMINE
     Dates: start: 20170708, end: 20170712
  17. POTASSIUM CHLORIDE. [Concomitant]
     Active Substance: POTASSIUM CHLORIDE
     Dates: start: 20170711, end: 20170711
  18. PENTAMIDINE [Concomitant]
     Active Substance: PENTAMIDINE
     Dates: start: 20170623, end: 20170719
  19. POTASSIUM PHOSPHATE [Concomitant]
     Active Substance: POTASSIUM PHOSPHATE
     Dates: start: 20170720, end: 20170727
  20. MIDAZOLAM [Concomitant]
     Active Substance: MIDAZOLAM HYDROCHLORIDE
     Dates: start: 20170725, end: 20170725
  21. POSACONAZOLE [Concomitant]
     Active Substance: POSACONAZOLE
     Dates: start: 20170624, end: 20170728
  22. SERTRALINE [Concomitant]
     Active Substance: SERTRALINE HYDROCHLORIDE
     Dates: start: 20170508, end: 20170727
  23. METHYLPREDNISOLONE. [Suspect]
     Active Substance: METHYLPREDNISOLONE
     Indication: GRAFT VERSUS HOST DISEASE
     Dosage: 100 MILLIGRAM/MILLILITERS DAILY; REGIMEN #1
     Route: 042
     Dates: start: 20170626, end: 20170710
  24. INCB018424 [Suspect]
     Active Substance: RUXOLITINIB
     Indication: GRAFT VERSUS HOST DISEASE
     Dosage: 20 MILLIGRAM DAILY; REGIMEN #1
     Dates: start: 20170706, end: 20170717
  25. SIROLIMUS. [Suspect]
     Active Substance: SIROLIMUS
     Indication: GRAFT VERSUS HOST DISEASE
     Dosage: .5 MILLIGRAM DAILY; REGIMEN #1
     Route: 048
     Dates: start: 20170718, end: 20170727
  26. ACETAMINOPHEN. [Concomitant]
     Active Substance: ACETAMINOPHEN
     Dates: start: 20170704, end: 20170727
  27. INSULIN [Concomitant]
     Active Substance: INSULIN NOS
     Dates: start: 20170627, end: 20170726
  28. URSODIOL. [Concomitant]
     Active Substance: URSODIOL
     Dates: start: 20170624, end: 20170627
  29. PROCHLORPERAZINE. [Concomitant]
     Active Substance: PROCHLORPERAZINE
     Dates: start: 20170625, end: 20170708
  30. LOPERAMIDE [Concomitant]
     Active Substance: LOPERAMIDE
     Dates: start: 20170627, end: 20170726
  31. METHYLPREDNISOLONE. [Suspect]
     Active Substance: METHYLPREDNISOLONE
     Dosage: 80 MILLIGRAM/MILLILITERS DAILY; REGIMEN #2
     Route: 042
     Dates: start: 20170711, end: 20170719
  32. METHYLPREDNISOLONE. [Suspect]
     Active Substance: METHYLPREDNISOLONE
     Dosage: 60 MILLIGRAM/MILLILITERS DAILY; REGIMEN #4
     Route: 042
     Dates: start: 20170723, end: 20170728
  33. BUDESONIDE. [Concomitant]
     Active Substance: BUDESONIDE
     Dates: start: 20170629, end: 20170727
  34. ERGOCALCIFEROL. [Concomitant]
     Active Substance: ERGOCALCIFEROL
     Dates: start: 20170630, end: 20170723
  35. CALCIUM GLUCONATE. [Concomitant]
     Active Substance: CALCIUM GLUCONATE
     Dates: start: 20170711, end: 20170720
  36. ALPRAZOLAM. [Concomitant]
     Active Substance: ALPRAZOLAM
     Dates: start: 20170715, end: 20170725
  37. ENOXAPARIN [Concomitant]
     Active Substance: ENOXAPARIN
     Dates: start: 20170624, end: 20170721
  38. FENTANYL. [Concomitant]
     Active Substance: FENTANYL
     Dates: start: 20170626, end: 20170628
  39. MAGNESIUM SULFATE. [Concomitant]
     Active Substance: MAGNESIUM SULFATE
     Dates: start: 20170630, end: 20170728
  40. ZOLEDRONIC ACID [Concomitant]
     Active Substance: ZOLEDRONIC ACID
     Dates: start: 20170717, end: 20170717
  41. LACTOBACILLUS RHAMNOSUS [Concomitant]
     Active Substance: LACTOBACILLUS RHAMNOSUS
     Dates: start: 20170718, end: 20170727
  42. COLYTE [Concomitant]
     Active Substance: POLYETHYLENE GLYCOL 3350\POTASSIUM CHLORIDE\SODIUM BICARBONATE\SODIUM CHLORIDE\SODIUM SULFATE ANHYDROUS
     Dates: start: 20170725, end: 20170725
  43. OCTREOTIDE. [Concomitant]
     Active Substance: OCTREOTIDE
     Dates: start: 20170721, end: 20170724
  44. TIZANIDINE. [Concomitant]
     Active Substance: TIZANIDINE
     Dates: start: 20170722, end: 20170727
  45. FUROSEMIDE. [Concomitant]
     Active Substance: FUROSEMIDE
     Dates: start: 20170725, end: 20170728
  46. GRANISETRON [Concomitant]
     Active Substance: GRANISETRON
     Dates: start: 20170625, end: 20170709
  47. BECLOMETHASONE [Concomitant]
     Active Substance: BECLOMETHASONE
     Dates: start: 20170629, end: 20170728
  48. METHYLPREDNISOLONE. [Suspect]
     Active Substance: METHYLPREDNISOLONE
     Dosage: 70 MILLIGRAM/MILLILITERS DAILY; REGIMEN #3
     Route: 042
     Dates: start: 20170720, end: 20170722
  49. VEDOLIZUMAB [Suspect]
     Active Substance: VEDOLIZUMAB
     Indication: GRAFT VERSUS HOST DISEASE
     Dosage: TIMES ONE;REGIMEN #1
     Route: 042
     Dates: start: 20170629, end: 20170629
  50. PANTOPRAZOLE [Concomitant]
     Active Substance: PANTOPRAZOLE
     Dates: start: 20170712, end: 20170727
  51. TPN NICOTINAMIDE, PYRIDOXINE HYDROCHLORIDE, TYROSINE [Concomitant]
  52. MONTELUKAST [Concomitant]
     Active Substance: MONTELUKAST SODIUM
     Dates: end: 20170727
  53. DICYCLOMINE [Concomitant]
     Active Substance: DICYCLOMINE HYDROCHLORIDE
     Dates: start: 20170625, end: 20170708

REACTIONS (4)
  - Staphylococcal infection [Fatal]
  - Hepatic failure [Fatal]
  - Acute kidney injury [Fatal]
  - Septic shock [Fatal]

NARRATIVE: CASE EVENT DATE: 20170726
